FAERS Safety Report 12734428 (Version 2)
Quarter: 2016Q4

REPORT INFORMATION
  Report Type: Spontaneous
  Country: US (occurrence: US)
  Receive Date: 20160912
  Receipt Date: 20161111
  Transmission Date: 20170207
  Serious: No
  Sender: FDA-Public Use
  Company Number: US-009507513-1608USA013668

PATIENT
  Sex: Female
  Weight: 45.17 kg

DRUGS (1)
  1. NEXPLANON [Suspect]
     Active Substance: ETONOGESTREL
     Dosage: 1 ROD/ 3 YEARS
     Route: 059
     Dates: start: 20130903, end: 20160811

REACTIONS (5)
  - No adverse event [Unknown]
  - Device deployment issue [Recovered/Resolved]
  - Complication of device removal [Recovered/Resolved]
  - Device kink [Recovered/Resolved]
  - Device breakage [Recovered/Resolved]
